FAERS Safety Report 6925431-7 (Version None)
Quarter: 2010Q3

REPORT INFORMATION
  Report Type: 
  Country: None (occurrence: None)
  Receive Date: 20100816
  Receipt Date: 20100804
  Transmission Date: 20110219
  Serious: Yes (Other)
  Sender: FDA-Public Use
  Company Number: IL-BAYER-201034985GPV

PATIENT
  Age: 77 Year
  Sex: Male
  Weight: 72 kg

DRUGS (13)
  1. SORAFENIB [Suspect]
     Indication: HEPATIC NEOPLASM MALIGNANT
     Dosage: TOTAL DAILY DOSE: 800 MG
     Route: 048
     Dates: start: 20100627, end: 20100706
  2. SORAFENIB [Suspect]
     Dosage: TOTAL DAILY DOSE: 800 MG
     Route: 048
     Dates: start: 20100715, end: 20100801
  3. ERLOTINIB HYDROCHLORIDE [Suspect]
     Indication: HEPATIC NEOPLASM MALIGNANT
     Dosage: CYCLE 1
     Route: 048
     Dates: start: 20100627, end: 20100706
  4. ERLOTINIB HYDROCHLORIDE [Suspect]
     Route: 048
     Dates: start: 20100715, end: 20100801
  5. IKAPRESS [Concomitant]
     Indication: HYPERTENSION
     Dates: start: 19900101
  6. TAMSULOSIN HCL [Concomitant]
     Indication: URINARY RETENTION
     Dates: start: 20090101
  7. FOLIC ACID [Concomitant]
     Dates: start: 20000101
  8. VITAMIN D [Concomitant]
     Route: 048
     Dates: start: 20070101
  9. CALCIUM [Concomitant]
     Indication: HYPOCALCAEMIA
     Dates: start: 20050101
  10. INSPRA [Concomitant]
     Indication: HYPOKALAEMIA
     Dates: start: 20000101
  11. ASPIRIN [Concomitant]
     Indication: PROPHYLAXIS
     Route: 048
     Dates: start: 20050101, end: 20100617
  12. ASPIRIN [Concomitant]
     Dates: start: 20100627
  13. ELTROXIN [Concomitant]
     Indication: THYROIDECTOMY
     Dates: start: 20040101

REACTIONS (1)
  - UVEITIS [None]
